FAERS Safety Report 5254448-6 (Version None)
Quarter: 2007Q1

REPORT INFORMATION
  Report Type: 
  Country: None (occurrence: None)
  Receive Date: 20070302
  Receipt Date: 20070220
  Transmission Date: 20070707
  Serious: Yes (Hospitalization, Other)
  Sender: FDA-Public Use
  Company Number: CO-PFIZER INC-2002056211

PATIENT
  Age: 42 Year
  Sex: Male

DRUGS (4)
  1. LOPID [Suspect]
     Indication: DYSLIPIDAEMIA
  2. LIPOBAY [Suspect]
     Indication: DYSLIPIDAEMIA
  3. METICORTEN [Concomitant]
  4. CLOFIBRATE [Concomitant]

REACTIONS (9)
  - HYPERLIPIDAEMIA [None]
  - LEUKOCYTOSIS [None]
  - LIVER DISORDER [None]
  - MALAISE [None]
  - MYOSITIS [None]
  - NEPHROTIC SYNDROME [None]
  - PLATELET COUNT INCREASED [None]
  - RHABDOMYOLYSIS [None]
  - VIRAL INFECTION [None]
